FAERS Safety Report 21897039 (Version 1)
Quarter: 2023Q1

REPORT INFORMATION
  Report Type: Spontaneous
  Country: AU (occurrence: AU)
  Receive Date: 20230123
  Receipt Date: 20230123
  Transmission Date: 20230418
  Serious: No
  Sender: FDA-Public Use
  Company Number: AU-002147023-NVSC2023AU010617

PATIENT
  Age: 9 Year
  Sex: Female
  Weight: 26 kg

DRUGS (1)
  1. TERBINAFINE [Suspect]
     Active Substance: TERBINAFINE
     Indication: Product used for unknown indication
     Dosage: 250 MG
     Route: 065

REACTIONS (2)
  - Product prescribing error [Unknown]
  - Off label use [Unknown]
